FAERS Safety Report 5966689-0 (Version None)
Quarter: 2008Q4

REPORT INFORMATION
  Report Type: 
  Country: None (occurrence: None)
  Receive Date: 20081125
  Receipt Date: 20080924
  Transmission Date: 20090506
  Serious: No
  Sender: FDA-Public Use
  Company Number: US-AMGEN-KDL309626

PATIENT
  Sex: Female

DRUGS (2)
  1. ENBREL [Suspect]
     Indication: RHEUMATOID ARTHRITIS
     Route: 058
  2. CALCIUM [Concomitant]

REACTIONS (4)
  - BURNING SENSATION [None]
  - FEELING ABNORMAL [None]
  - HYPOAESTHESIA [None]
  - OEDEMA PERIPHERAL [None]
